FAERS Safety Report 9287217 (Version 2)
Quarter: 2013Q2

REPORT INFORMATION
  Report Type: Spontaneous
  Country: JP (occurrence: JP)
  Receive Date: 20130513
  Receipt Date: 20130522
  Transmission Date: 20140414
  Serious: Yes (Other)
  Sender: FDA-Public Use
  Company Number: JP-B.I. PHARMACEUTICALS,INC./RIDGEFIELD-2013-BI-12838NB

PATIENT
  Age: 76 Year
  Sex: Male

DRUGS (6)
  1. PRADAXA [Suspect]
     Indication: ATRIAL FIBRILLATION
     Dosage: 220 MG
     Route: 048
     Dates: start: 20130426
  2. SUNRYTHM [Concomitant]
     Indication: ARRHYTHMIA
     Dosage: 50 MG
     Route: 048
  3. CRESTOR [Concomitant]
     Indication: DYSLIPIDAEMIA
     Dosage: 5 MG
     Route: 048
  4. PLAVIX [Concomitant]
     Dosage: 50 MG
     Route: 048
  5. MYSLEE [Concomitant]
     Dosage: 5 MG
     Route: 048
  6. MARZULENE-S [Concomitant]
     Route: 048

REACTIONS (3)
  - Road traffic accident [Unknown]
  - Dizziness [Recovered/Resolved]
  - Epistaxis [Recovered/Resolved]
